FAERS Safety Report 18666305 (Version 4)
Quarter: 2021Q1

REPORT INFORMATION
  Report Type: Spontaneous
  Country: US (occurrence: US)
  Receive Date: 20201226
  Receipt Date: 20210216
  Transmission Date: 20210419
  Serious: No
  Sender: FDA-Public Use
  Company Number: US-009507513-2012USA007817

PATIENT
  Sex: Male

DRUGS (2)
  1. DULERA [Suspect]
     Active Substance: FORMOTEROL FUMARATE DIHYDRATE\MOMETASONE FUROATE
     Dosage: 2 PUFF ONCE DAILY
     Dates: start: 202101
  2. DULERA [Suspect]
     Active Substance: FORMOTEROL FUMARATE DIHYDRATE\MOMETASONE FUROATE
     Dosage: 2 PUFFS ONCE DAILY
     Dates: start: 202011

REACTIONS (10)
  - Device malfunction [Unknown]
  - Poor quality device used [Unknown]
  - Poor quality device used [Unknown]
  - Product prescribing issue [Unknown]
  - Product use issue [Unknown]
  - Device malfunction [Unknown]
  - Product use issue [Unknown]
  - No adverse event [Unknown]
  - Wrong technique in device usage process [Unknown]
  - Product dose omission issue [Unknown]

NARRATIVE: CASE EVENT DATE: 202011
